FAERS Safety Report 6755517-1 (Version None)
Quarter: 2010Q2

REPORT INFORMATION
  Report Type: 
  Country: None (occurrence: None)
  Receive Date: 20100602
  Receipt Date: 20100224
  Transmission Date: 20101027
  Serious: Yes (Other)
  Sender: FDA-Public Use
  Company Number: 475042

PATIENT
  Age: 66 Year
  Sex: Female

DRUGS (6)
  1. METHOTREXATE [Suspect]
     Indication: METASTASES TO MENINGES
     Dosage: 12.5 MG MILLIGRAM(S), 1 WEEK, INTRATHECAL
     Route: 037
     Dates: start: 20091216, end: 20091218
  2. LEUCOVORIN CALCIUM [Concomitant]
  3. IBANDRONIC ACID [Concomitant]
  4. ACETAMINOPHEN AND CODEINE PHOSPHATE [Concomitant]
  5. QUININE [Concomitant]
  6. TINZAPARIN [Concomitant]

REACTIONS (5)
  - CLOSTRIDIUM DIFFICILE COLITIS [None]
  - DEHYDRATION [None]
  - ECZEMA ASTEATOTIC [None]
  - MUCOSAL INFLAMMATION [None]
  - PANCYTOPENIA [None]
